FAERS Safety Report 7931781 (Version 6)
Quarter: 2013Q1

REPORT INFORMATION
  Report Type: Spontaneous
  Country: US (occurrence: US)
  Receive Date: 20110505
  Receipt Date: 20130205
  Transmission Date: 20140127
  Serious: Yes (Hospitalization, Other)
  Sender: FDA-Public Use
  Company Number: US-ALEXION-A201100624

PATIENT
  Age: 81 None
  Sex: Male
  Weight: 73 kg

DRUGS (12)
  1. SOLIRIS 300MG [Suspect]
     Indication: PAROXYSMAL NOCTURNAL HAEMOGLOBINURIA
     Dosage: 600 MG, QW
     Route: 042
     Dates: start: 2011
  2. SOLIRIS 300MG [Suspect]
     Dosage: 900 MG, Q2W
     Route: 042
  3. SOLIRIS 300MG [Suspect]
     Dosage: 900 MG, Q 10 DAYS
     Route: 042
  4. SOLIRIS 300MG [Suspect]
     Dosage: 900 MG, Q2W
     Route: 042
  5. MIRTAZAPINE [Concomitant]
  6. LIPITOR [Concomitant]
     Dosage: 80 MG, QD
     Route: 048
  7. LORAZEPAM [Concomitant]
     Dosage: 1 MG, QD
     Route: 048
  8. LEXAPRO [Concomitant]
     Dosage: 15 MG, QD
     Route: 048
  9. FOLIC ACID [Concomitant]
     Dosage: 1 MG, QD
     Route: 048
  10. DILTIAZEM HCL [Concomitant]
     Dosage: 120 MG, BID
     Route: 048
  11. AVODART [Concomitant]
     Dosage: 0.5 MG, QD
     Route: 048
  12. BLOOD TRANSFUSION, AUXILIARY PRODUCTS [Concomitant]
     Dosage: UNK

REACTIONS (9)
  - Chronic myelomonocytic leukaemia [Not Recovered/Not Resolved]
  - Asthenia [Unknown]
  - Clostridium difficile infection [Recovered/Resolved]
  - Nausea [Unknown]
  - Fatigue [Not Recovered/Not Resolved]
  - Packed red blood cell transfusion [Recovered/Resolved]
  - Haemolysis [Unknown]
  - Oedema peripheral [Unknown]
  - Blood lactate dehydrogenase increased [Unknown]
